FAERS Safety Report 19040283 (Version 8)
Quarter: 2021Q2

REPORT INFORMATION
  Report Type: Spontaneous
  Country: US (occurrence: US)
  Receive Date: 20210323
  Receipt Date: 20210514
  Transmission Date: 20210717
  Serious: Yes (Other)
  Sender: FDA-Public Use
  Company Number: US-UNITED THERAPEUTICS-UNT-2021-000092

PATIENT
  Age: 45 Year
  Sex: Female
  Weight: 113.83 kg

DRUGS (13)
  1. GABAPENTIN. [Suspect]
     Active Substance: GABAPENTIN
     Indication: PAIN
     Dosage: UNK UNK, BID
     Route: 065
  2. ORENITRAM [Suspect]
     Active Substance: TREPROSTINIL
     Indication: PULMONARY ARTERIAL HYPERTENSION
     Dosage: UNK
     Route: 048
  3. UPTRAVI [Suspect]
     Active Substance: SELEXIPAG
     Dosage: 1000 MCG IN MORNING AND 1200 MCG IN EVENING, BID
     Route: 065
  4. ORENITRAM [Suspect]
     Active Substance: TREPROSTINIL
     Dosage: 1 MG, Q8H
     Route: 048
  5. UPTRAVI [Suspect]
     Active Substance: SELEXIPAG
     Dosage: 1000 ?G, BID
     Route: 065
  6. ORENITRAM [Suspect]
     Active Substance: TREPROSTINIL
     Dosage: 3 MG, Q8H
     Route: 048
  7. GABAPENTIN. [Suspect]
     Active Substance: GABAPENTIN
     Dosage: UNK UNK, QD
     Route: 065
  8. LETAIRIS [Suspect]
     Active Substance: AMBRISENTAN
     Indication: PULMONARY ARTERIAL HYPERTENSION
     Dosage: 10 MG, QD
     Route: 048
     Dates: start: 20191008
  9. UPTRAVI [Suspect]
     Active Substance: SELEXIPAG
     Dosage: 1200 ?G, BID
     Route: 065
  10. LETAIRIS [Suspect]
     Active Substance: AMBRISENTAN
     Indication: PULMONARY HYPERTENSION
     Dosage: UNK
     Route: 048
  11. SILDENAFIL CITRATE. [Concomitant]
     Active Substance: SILDENAFIL CITRATE
     Indication: PRODUCT USED FOR UNKNOWN INDICATION
     Dosage: UNK
     Route: 065
  12. ORENITRAM [Suspect]
     Active Substance: TREPROSTINIL
     Indication: PULMONARY ARTERIAL HYPERTENSION
     Dosage: UNK
     Route: 048
     Dates: start: 20191008
  13. UPTRAVI [Suspect]
     Active Substance: SELEXIPAG
     Indication: PULMONARY HYPERTENSION
     Dosage: UNK
     Route: 065

REACTIONS (25)
  - Sinusitis [Unknown]
  - Irritability [Unknown]
  - Weight increased [Not Recovered/Not Resolved]
  - Faecaloma [Not Recovered/Not Resolved]
  - Nasal congestion [Unknown]
  - Pain [Not Recovered/Not Resolved]
  - Vertigo [Not Recovered/Not Resolved]
  - Constipation [Recovered/Resolved]
  - Flushing [Not Recovered/Not Resolved]
  - Nasal discharge discolouration [Unknown]
  - Dizziness postural [Unknown]
  - Nausea [Recovering/Resolving]
  - Headache [Not Recovered/Not Resolved]
  - Insomnia [Unknown]
  - Dizziness [Unknown]
  - Pain in extremity [Recovering/Resolving]
  - Faeces hard [Unknown]
  - Fluid retention [Not Recovered/Not Resolved]
  - Weight decreased [Unknown]
  - Cough [Unknown]
  - Myalgia [Not Recovered/Not Resolved]
  - Arthralgia [Unknown]
  - Back pain [Not Recovered/Not Resolved]
  - Dyspnoea at rest [Recovering/Resolving]
  - Wheezing [Recovered/Resolved]

NARRATIVE: CASE EVENT DATE: 202102
